FAERS Safety Report 5722663-0 (Version None)
Quarter: 2008Q2

REPORT INFORMATION
  Report Type: 
  Country: None (occurrence: None)
  Receive Date: 20080429
  Receipt Date: 20070803
  Transmission Date: 20081010
  Serious: No
  Sender: FDA-Public Use
  Company Number: US-ASTRAZENECA-2007UW18712

PATIENT
  Age: 88 Year
  Sex: Female

DRUGS (6)
  1. NEXIUM [Suspect]
     Indication: DYSPEPSIA
     Route: 048
     Dates: start: 20070731
  2. NEXIUM [Suspect]
     Route: 048
     Dates: start: 20070801
  3. NEXIUM [Suspect]
     Route: 048
     Dates: start: 20070802
  4. GLUCOPHAGE [Concomitant]
  5. GLYBURIDE [Concomitant]
  6. ATENOLOL [Concomitant]
     Route: 048

REACTIONS (2)
  - ACCIDENTAL OVERDOSE [None]
  - DIARRHOEA [None]
